FAERS Safety Report 16845406 (Version 1)
Quarter: 2019Q3

REPORT INFORMATION
  Report Type: Spontaneous
  Country: US (occurrence: US)
  Receive Date: 20190924
  Receipt Date: 20190924
  Transmission Date: 20191005
  Serious: No
  Sender: FDA-Public Use
  Company Number: US-BRECKENRIDGE PHARMACEUTICAL, INC.-2074836

PATIENT
  Age: 65 Year
  Sex: Female
  Weight: 61.36 kg

DRUGS (1)
  1. EPINASTINE HYDROCHLORIDE. [Suspect]
     Active Substance: EPINASTINE HYDROCHLORIDE
     Route: 047

REACTIONS (2)
  - Eye irritation [None]
  - Eye discharge [None]
